FAERS Safety Report 16327322 (Version 1)
Quarter: 2019Q2

REPORT INFORMATION
  Report Type: Spontaneous
  Country: PT (occurrence: PT)
  Receive Date: 20190517
  Receipt Date: 20190517
  Transmission Date: 20190711
  Serious: Yes (Other)
  Sender: FDA-Public Use
  Company Number: PT-MYLANLABS-2019M1046445

PATIENT
  Age: 25 Year
  Sex: Female

DRUGS (4)
  1. TENOFOVIR [Concomitant]
     Active Substance: TENOFOVIR
     Indication: HIV TEST POSITIVE
     Dosage: 1 DOSAGE FORM, QD
     Route: 048
     Dates: start: 20050301
  2. LAMIVUDINE. [Concomitant]
     Active Substance: LAMIVUDINE
     Indication: HIV TEST POSITIVE
     Dosage: 300 MILLIGRAM, QD
     Route: 048
     Dates: start: 20050301
  3. ATAZANAVIR SULFATE. [Suspect]
     Active Substance: ATAZANAVIR SULFATE
     Indication: HIV TEST POSITIVE
     Dosage: 300 MILLIGRAM, QD
     Route: 048
     Dates: start: 20050301
  4. RITONAVIR. [Concomitant]
     Active Substance: RITONAVIR
     Indication: HIV TEST POSITIVE
     Dosage: 100 MILLIGRAM, QD
     Route: 048
     Dates: start: 20050301

REACTIONS (3)
  - Alanine aminotransferase increased [Recovering/Resolving]
  - Aspartate aminotransferase increased [Recovering/Resolving]
  - Blood bilirubin [Unknown]

NARRATIVE: CASE EVENT DATE: 20050517
